FAERS Safety Report 8495211-2 (Version None)
Quarter: 2012Q2

REPORT INFORMATION
  Report Type: 
  Country: None (occurrence: None)
  Receive Date: 20120405
  Receipt Date: 20100322
  Transmission Date: 20120825
  Serious: Yes (Hospitalization)
  Sender: FDA-Public Use
  Company Number: PHHY2010US18177

PATIENT
  Age: 51 Year
  Sex: Female

DRUGS (1)
  1. RECLAST [Suspect]

REACTIONS (3)
  - NON-CARDIAC CHEST PAIN [None]
  - PYREXIA [None]
  - BLADDER DISORDER [None]
